FAERS Safety Report 21197011 (Version 3)
Quarter: 2022Q3

REPORT INFORMATION
  Report Type: Report from Study
  Country: DE (occurrence: DE)
  Receive Date: 20220810
  Receipt Date: 20220822
  Transmission Date: 20221026
  Serious: Yes (Other)
  Sender: FDA-Public Use
  Company Number: DE-BAXTER-2022BAX017097

PATIENT
  Sex: Female

DRUGS (4)
  1. CERNEVIT [Suspect]
     Active Substance: VITAMINS
     Indication: Parenteral nutrition
     Dosage: 750 MILLIGRAMS (MG), ONCE DAILY ADMINISTERED VIA CENTRAL VENOUS ROUTE AT INFUSION RATE OF 120 MILLIL
     Route: 042
     Dates: start: 20220722
  2. AMINO ACIDS\DEXTROSE\ELECTROLYTES NOS\SOYBEAN OIL [Suspect]
     Active Substance: AMINO ACIDS\DEXTROSE\ELECTROLYTES NOS\SOYBEAN OIL
     Indication: Parenteral nutrition
     Dosage: 1450 MILLILITERS (ML), ONCE DAILY ADMINISTERED VIA CENTRAL VENOUS ROUTE AT INFUSION RATE OF 120 MILL
     Route: 042
     Dates: start: 20220722
  3. ELECTROLYTES NOS\MINERALS [Suspect]
     Active Substance: ELECTROLYTES NOS\MINERALS
     Indication: Parenteral nutrition
     Dosage: 10 MILLILITERS (ML), ONCE DAILY ADMINISTERED VIA CENTRAL VENOUS ROUTE AT INFUSION RATE OF 120 MILLIL
     Route: 042
     Dates: start: 20220722
  4. UNSPECIFIED INGREDIENT [Suspect]
     Active Substance: UNSPECIFIED INGREDIENT
     Route: 065

REACTIONS (1)
  - Pneumonia [Recovering/Resolving]

NARRATIVE: CASE EVENT DATE: 20220808
